FAERS Safety Report 7598017-1 (Version None)
Quarter: 2011Q3

REPORT INFORMATION
  Report Type: 
  Country: None (occurrence: None)
  Receive Date: 20110708
  Receipt Date: 20110628
  Transmission Date: 20111222
  Serious: Yes (Other)
  Sender: FDA-Public Use
  Company Number: US-JNJFOC-20110612951

PATIENT
  Sex: Female

DRUGS (9)
  1. REMICADE [Suspect]
     Route: 042
     Dates: start: 20071101, end: 20091201
  2. REMICADE [Suspect]
     Indication: COLITIS ULCERATIVE
     Route: 042
     Dates: start: 20071101, end: 20091201
  3. REMICADE [Suspect]
     Route: 042
     Dates: start: 20100101, end: 20100101
  4. REMICADE [Suspect]
     Route: 042
     Dates: start: 20071101, end: 20091201
  5. REMICADE [Suspect]
     Route: 042
     Dates: start: 20100101, end: 20100101
  6. REMICADE [Suspect]
     Indication: PSORIASIS
     Route: 042
  7. REMICADE [Suspect]
     Indication: PSORIATIC ARTHROPATHY
     Route: 042
     Dates: start: 20100101, end: 20100101
  8. REMICADE [Suspect]
     Route: 042
  9. REMICADE [Suspect]
     Route: 042

REACTIONS (4)
  - OBESITY SURGERY [None]
  - KNEE ARTHROPLASTY [None]
  - COLITIS ULCERATIVE [None]
  - GALLBLADDER OPERATION [None]
